FAERS Safety Report 8317201-2 (Version None)
Quarter: 2012Q2

REPORT INFORMATION
  Report Type: 
  Country: None (occurrence: None)
  Receive Date: 20120427
  Receipt Date: 20120422
  Transmission Date: 20120825
  Serious: Yes (Hospitalization)
  Sender: FDA-Public Use
  Company Number: PHHY2012IL034673

PATIENT
  Sex: Female

DRUGS (1)
  1. TASIGNA [Suspect]
     Indication: CHRONIC MYELOID LEUKAEMIA
     Dosage: 300 MG,
     Route: 048

REACTIONS (4)
  - BLOOD BILIRUBIN INCREASED [None]
  - ELECTROCARDIOGRAM QT PROLONGED [None]
  - NAUSEA [None]
  - HEPATIC ENZYME INCREASED [None]
